FAERS Safety Report 24729174 (Version 2)
Quarter: 2025Q1

REPORT INFORMATION
  Report Type: Spontaneous
  Country: US (occurrence: US)
  Receive Date: 20241213
  Receipt Date: 20250307
  Transmission Date: 20250408
  Serious: No
  Sender: LUPIN
  Company Number: US-LUPIN PHARMACEUTICALS INC.-2024-11836

PATIENT
  Age: 22 Year
  Sex: Male
  Weight: 95.1 kg

DRUGS (21)
  1. LEVOTHYROXINE [Suspect]
     Active Substance: LEVOTHYROXINE
     Indication: Autoimmune thyroiditis
     Dosage: 75 MICROGRAM, QD
     Route: 048
  2. POTASSIUM IODIDE [Concomitant]
     Active Substance: POTASSIUM IODIDE
     Indication: Thyrotoxic crisis
     Dosage: 5 DROP, QID
     Route: 065
  3. HYDROCORTISONE [Concomitant]
     Active Substance: HYDROCORTISONE
     Indication: Thyrotoxic crisis
     Dosage: 100 MILLIGRAM, TID (2 DOSES OF HYDROCORTISONE IV EVERY 8 HOURS)
     Route: 042
  4. HYDROCORTISONE [Concomitant]
     Active Substance: HYDROCORTISONE
     Dosage: UNK UNK, TID  (2 DOSES OF HYDROCORTISONE IV EVERY 8 HOURS)
     Route: 042
  5. PROPYLTHIOURACIL [Concomitant]
     Active Substance: PROPYLTHIOURACIL
     Indication: Thyrotoxic crisis
     Route: 048
  6. PROPYLTHIOURACIL [Concomitant]
     Active Substance: PROPYLTHIOURACIL
     Route: 048
  7. PROPYLTHIOURACIL [Concomitant]
     Active Substance: PROPYLTHIOURACIL
     Route: 048
  8. CHOLESTYRAMINE [Concomitant]
     Active Substance: CHOLESTYRAMINE
     Indication: Thyrotoxic crisis
     Dosage: 4 GRAM, BID
     Route: 065
  9. LUGOL [Concomitant]
     Active Substance: IODINE\POTASSIUM IODIDE
     Indication: Thyrotoxic crisis
     Route: 065
  10. ESMOLOL [Concomitant]
     Active Substance: ESMOLOL HYDROCHLORIDE
     Indication: Heart rate abnormal
     Route: 042
  11. INSULIN NOS [Concomitant]
     Active Substance: INSULIN NOS
     Indication: Heart rate abnormal
     Route: 065
  12. PROPRANOLOL HYDROCHLORIDE [Concomitant]
     Active Substance: PROPRANOLOL HYDROCHLORIDE
     Indication: Heart rate abnormal
     Dosage: 40 MILLIGRAM, TID
     Route: 048
  13. PROPRANOLOL HYDROCHLORIDE [Concomitant]
     Active Substance: PROPRANOLOL HYDROCHLORIDE
     Dosage: 40 MG, SINGLE
     Route: 048
  14. LACOSAMIDE [Concomitant]
     Active Substance: LACOSAMIDE
     Indication: Epilepsy
     Dosage: 100 MILLIGRAM, BID
     Route: 048
  15. LACOSAMIDE [Concomitant]
     Active Substance: LACOSAMIDE
     Dosage: 200 MILLIGRAM, SINGLE
     Route: 042
  16. LACOSAMIDE [Concomitant]
     Active Substance: LACOSAMIDE
     Dosage: 150 MG, BID, INCREASED DOSE
     Route: 042
  17. INSULIN ASPART [Concomitant]
     Active Substance: INSULIN ASPART
     Indication: Type 1 diabetes mellitus
     Route: 065
  18. LORAZEPAM [Concomitant]
     Active Substance: LORAZEPAM
     Indication: Epilepsy
     Route: 042
  19. MIDAZOLAM [Concomitant]
     Active Substance: MIDAZOLAM
     Indication: Sedation
     Route: 042
  20. PROPOFOL [Concomitant]
     Active Substance: PROPOFOL
     Indication: Sedation
     Route: 042
  21. DEXTROSE [Concomitant]
     Active Substance: DEXTROSE MONOHYDRATE
     Indication: Euglycaemic diabetic ketoacidosis
     Route: 065

REACTIONS (1)
  - Treatment noncompliance [Unknown]
